FAERS Safety Report 9772799 (Version 2)
Quarter: 2013Q4

REPORT INFORMATION
  Report Type: Report from Study
  Country: US (occurrence: US)
  Receive Date: 20131219
  Receipt Date: 20131219
  Transmission Date: 20140711
  Serious: Yes (Death, Hospitalization, Other)
  Sender: FDA-Public Use
  Company Number: US-ABBVIE-13P-163-1133946-00

PATIENT
  Sex: Male
  Weight: 127.12 kg

DRUGS (11)
  1. HUMIRA [Suspect]
     Indication: RHEUMATOID ARTHRITIS
     Dates: start: 2007
  2. HUMIRA [Suspect]
     Indication: PSORIATIC ARTHROPATHY
  3. HIGH CHOLESTEROL MEDICINES [Concomitant]
     Indication: BLOOD CHOLESTEROL INCREASED
  4. ARTHRITIS MEDICINE [Concomitant]
     Indication: ARTHRITIS
  5. AMLODIPINE [Concomitant]
     Indication: PRODUCT USED FOR UNKNOWN INDICATION
  6. ATENOLOL [Concomitant]
     Indication: PRODUCT USED FOR UNKNOWN INDICATION
  7. VITAMIN D [Concomitant]
     Indication: PRODUCT USED FOR UNKNOWN INDICATION
  8. LASIX [Concomitant]
     Indication: PRODUCT USED FOR UNKNOWN INDICATION
  9. LISINOPRIL [Concomitant]
     Indication: PRODUCT USED FOR UNKNOWN INDICATION
  10. PRAVACHOL [Concomitant]
     Indication: PRODUCT USED FOR UNKNOWN INDICATION
  11. PREDNISONE [Concomitant]
     Indication: PRODUCT USED FOR UNKNOWN INDICATION

REACTIONS (14)
  - Sepsis [Fatal]
  - Candida infection [Unknown]
  - Platelet count decreased [Unknown]
  - Blood disorder [Unknown]
  - Myelodysplastic syndrome [Unknown]
  - Leukaemia [Unknown]
  - Oropharyngeal pain [Unknown]
  - Stomatitis [Unknown]
  - Mouth haemorrhage [Unknown]
  - Renal disorder [Unknown]
  - Pyrexia [Unknown]
  - Cardiac arrest [Unknown]
  - White blood cell count decreased [Unknown]
  - Feeling abnormal [Unknown]
